FAERS Safety Report 25180229 (Version 1)
Quarter: 2025Q2

REPORT INFORMATION
  Report Type: Report from Study
  Country: CA (occurrence: CA)
  Receive Date: 20250409
  Receipt Date: 20250409
  Transmission Date: 20250717
  Serious: Yes (Hospitalization, Other)
  Sender: BAYER
  Company Number: CA-BAYER-2025A044617

PATIENT
  Age: 51 Year
  Sex: Female

DRUGS (5)
  1. CIPROFLOXACIN [Suspect]
     Active Substance: CIPROFLOXACIN
     Indication: Kidney infection
  2. CIPROFLOXACIN [Suspect]
     Active Substance: CIPROFLOXACIN
     Indication: Cystitis
  3. EPTINEZUMAB [Suspect]
     Active Substance: EPTINEZUMAB
     Indication: Product used for unknown indication
     Route: 042
  4. EPTINEZUMAB [Suspect]
     Active Substance: EPTINEZUMAB
     Indication: Migraine
     Route: 042
  5. CANDESARTAN [Concomitant]
     Active Substance: CANDESARTAN
     Indication: Product used for unknown indication

REACTIONS (4)
  - Kidney infection [Recovered/Resolved]
  - Cystitis [Recovered/Resolved]
  - Inappropriate schedule of product administration [None]
  - Blood iron increased [Recovered/Resolved]
